FAERS Safety Report 4571266-2 (Version None)
Quarter: 2005Q1

REPORT INFORMATION
  Report Type: 
  Country: None (occurrence: None)
  Receive Date: 20050202
  Receipt Date: 20050113
  Transmission Date: 20050727
  Serious: Yes (Life-Threatening, Hospitalization)
  Sender: FDA-Public Use
  Company Number: US_0501110297

PATIENT
  Age: 2 Year
  Sex: Female
  Weight: 16 kg

DRUGS (1)
  1. CYMBALTA [Suspect]
     Dosage: 180 MG DAY
     Dates: start: 20041221, end: 20041221

REACTIONS (4)
  - ACCIDENTAL EXPOSURE [None]
  - BLOOD CREATINE PHOSPHOKINASE INCREASED [None]
  - MEDICATION ERROR [None]
  - SEROTONIN SYNDROME [None]
